FAERS Safety Report 25797678 (Version 1)
Quarter: 2025Q3

REPORT INFORMATION
  Report Type: Spontaneous
  Country: US (occurrence: US)
  Receive Date: 20250912
  Receipt Date: 20250912
  Transmission Date: 20251021
  Serious: Yes (Other)
  Sender: REGENERON
  Company Number: US-REGENERON PHARMACEUTICALS, INC.-2025-096305

PATIENT
  Age: 73 Year
  Sex: Male

DRUGS (1)
  1. EYLEA HD [Suspect]
     Active Substance: AFLIBERCEPT
     Indication: Neovascular age-related macular degeneration

REACTIONS (4)
  - Eye inflammation [Recovered/Resolved]
  - Nausea [Unknown]
  - Diarrhoea [Unknown]
  - Adverse event [Unknown]
